FAERS Safety Report 7203381-9 (Version None)
Quarter: 2010Q4

REPORT INFORMATION
  Report Type: 
  Country: None (occurrence: None)
  Receive Date: 20101230
  Receipt Date: 20101221
  Transmission Date: 20110411
  Serious: Yes (Death)
  Sender: FDA-Public Use
  Company Number: TW-JNJFOC-20090705273

PATIENT
  Sex: Female
  Weight: 1.6 kg

DRUGS (1)
  1. ACETAMINOPHEN [Suspect]
     Indication: OVERDOSE
     Route: 065

REACTIONS (6)
  - APNOEA [None]
  - BRADYCARDIA [None]
  - DEATH [None]
  - FOETAL DISORDER [None]
  - HEPATIC FUNCTION ABNORMAL [None]
  - RENAL FAILURE ACUTE [None]
